FAERS Safety Report 20296720 (Version 1)
Quarter: 2022Q1

REPORT INFORMATION
  Report Type: Spontaneous
  Country: GB (occurrence: GB)
  Receive Date: 20220105
  Receipt Date: 20220105
  Transmission Date: 20220423
  Serious: No
  Sender: FDA-Public Use
  Company Number: None

PATIENT
  Age: 11 Year
  Sex: Male
  Weight: 29 kg

DRUGS (3)
  1. IBUPROFEN [Suspect]
     Active Substance: IBUPROFEN
     Indication: Ill-defined disorder
     Dosage: 100MG/5ML
     Route: 065
     Dates: start: 20211028
  2. BECLOMETHASONE DIPROPIONATE [Concomitant]
     Active Substance: BECLOMETHASONE DIPROPIONATE
     Indication: Ill-defined disorder
     Dosage: TWO SPRAYS IN EACH NOSTRIL TWICE A DAY. REDUCE ...
     Route: 065
     Dates: start: 20200306
  3. ACETAMINOPHEN [Concomitant]
     Active Substance: ACETAMINOPHEN
     Indication: Ill-defined disorder
     Dosage: 500 MG
     Route: 065
     Dates: start: 20211028

REACTIONS (1)
  - Sensitive skin [Recovered/Resolved]

NARRATIVE: CASE EVENT DATE: 20211028
